FAERS Safety Report 9466212 (Version 1)
Quarter: 2013Q3

REPORT INFORMATION
  Report Type: Spontaneous
  Country: US (occurrence: None)
  Receive Date: 20130816
  Receipt Date: 20130816
  Transmission Date: 20140515
  Serious: No
  Sender: FDA-Public Use
  Company Number: None

PATIENT
  Age: 2 Year
  Sex: Male
  Weight: 13.61 kg

DRUGS (1)
  1. CHILDREN^S ADVIL [Suspect]
     Indication: NASOPHARYNGITIS
     Dosage: 1 TSP  AS NEEDED  TAKEN BY MOUTH
     Route: 048
     Dates: start: 20130813, end: 20130814

REACTIONS (4)
  - Psychomotor hyperactivity [None]
  - Aggression [None]
  - Euphoric mood [None]
  - Reaction to azo-dyes [None]
